FAERS Safety Report 19606551 (Version 2)
Quarter: 2021Q3

REPORT INFORMATION
  Report Type: Spontaneous
  Country: DE (occurrence: DE)
  Receive Date: 20210725
  Receipt Date: 20210730
  Transmission Date: 20211014
  Serious: Yes (Other)
  Sender: FDA-Public Use
  Company Number: NVSC2021DE129782

PATIENT
  Age: 49 Year
  Sex: Male

DRUGS (1)
  1. ADALIMUMAB [Suspect]
     Active Substance: ADALIMUMAB
     Indication: PSORIASIS
     Dosage: 40 MG, BIW
     Route: 058
     Dates: start: 2015

REACTIONS (2)
  - Erythema elevatum diutinum [Recovered/Resolved]
  - Monoclonal gammopathy [Recovered/Resolved]
